FAERS Safety Report 10706374 (Version 1)
Quarter: 2015Q1

REPORT INFORMATION
  Report Type: Spontaneous
  Country: US (occurrence: US)
  Receive Date: 20150113
  Receipt Date: 20150113
  Transmission Date: 20150721
  Serious: Yes (Death, Life-Threatening, Hospitalization, Other)
  Sender: FDA-Public Use
  Company Number: US-AMGEN-USASP2015000870

PATIENT
  Age: 62 Year
  Sex: Male

DRUGS (1)
  1. ENBREL [Suspect]
     Active Substance: ETANERCEPT
     Indication: PSORIASIS
     Dosage: UNK UNK, ONCE OR TWICE WEEK
     Route: 065
     Dates: end: 201412

REACTIONS (9)
  - Dyspnoea exertional [Recovered/Resolved]
  - Myocardial infarction [Recovered/Resolved]
  - Atrioventricular block complete [Recovered/Resolved]
  - Blood viscosity abnormal [Recovered/Resolved]
  - Cardiac failure [Fatal]
  - Overweight [Recovered/Resolved]
  - Pericardial effusion [Recovered/Resolved]
  - Cardiac arrest [Fatal]
  - Pulmonary oedema [Fatal]

NARRATIVE: CASE EVENT DATE: 201403
